FAERS Safety Report 24096675 (Version 1)
Quarter: 2024Q3

REPORT INFORMATION
  Report Type: Report from Study
  Country: US (occurrence: None)
  Receive Date: 20240716
  Receipt Date: 20240716
  Transmission Date: 20241016
  Serious: Yes (Other)
  Sender: ASTRAZENECA
  Company Number: 2020SE52756

PATIENT
  Sex: Female

DRUGS (2)
  1. CALQUENCE [Suspect]
     Active Substance: ACALABRUTINIB
     Indication: Chronic lymphocytic leukaemia
     Route: 048
  2. NAPROSYN [Concomitant]
     Active Substance: NAPROXEN

REACTIONS (4)
  - Migraine [Unknown]
  - Nausea [Recovering/Resolving]
  - Fatigue [Unknown]
  - Arthralgia [Unknown]
